FAERS Safety Report 8557860-2 (Version None)
Quarter: 2012Q3

REPORT INFORMATION
  Report Type: 
  Country: None (occurrence: None)
  Receive Date: 20120801
  Receipt Date: 20120723
  Transmission Date: 20120928
  Serious: Yes (Hospitalization)
  Sender: FDA-Public Use
  Company Number: JP-GLAXOSMITHKLINE-B0810517A

PATIENT
  Sex: Female
  Weight: 39 kg

DRUGS (5)
  1. NORVASC [Concomitant]
     Indication: HYPERTENSION
     Dosage: 5MG PER DAY
     Route: 048
     Dates: start: 20120326
  2. CRESTOR [Concomitant]
     Indication: HYPERLIPIDAEMIA
     Dosage: 2.5MG PER DAY
     Route: 048
     Dates: start: 20120326
  3. VALTREX [Suspect]
     Indication: HERPES ZOSTER
     Dosage: 500MG PER DAY
     Route: 048
     Dates: start: 20120619, end: 20120621
  4. PRECIPITATED CALCIUM CARBONATE [Concomitant]
     Dosage: 3000MG PER DAY
     Route: 048
     Dates: start: 20120326
  5. NALFURAFINE HYDROCHLORIDE [Concomitant]
     Indication: PRURITUS
     Dosage: 2.5MCG PER DAY
     Route: 048

REACTIONS (4)
  - ENCEPHALOPATHY [None]
  - GAIT DISTURBANCE [None]
  - FEELING ABNORMAL [None]
  - DIZZINESS [None]
